FAERS Safety Report 4612369-3 (Version None)
Quarter: 2005Q1

REPORT INFORMATION
  Report Type: 
  Country: None (occurrence: None)
  Receive Date: 20050308
  Receipt Date: 20041117
  Transmission Date: 20050727
  Serious: Yes (Other)
  Sender: FDA-Public Use
  Company Number: 2004UW23659

PATIENT
  Age: 77 Year
  Sex: Female
  Weight: 61.234 kg

DRUGS (2)
  1. CRESTOR [Suspect]
     Indication: BLOOD CHOLESTEROL INCREASED
     Dosage: 10 MG PO
     Route: 048
  2. CRESTOR [Suspect]
     Indication: BLOOD CHOLESTEROL INCREASED
     Dosage: 5 MG PO
     Route: 048

REACTIONS (5)
  - ANOREXIA [None]
  - MUSCLE ATROPHY [None]
  - RHABDOMYOLYSIS [None]
  - SKIN STRIAE [None]
  - WEIGHT DECREASED [None]
